FAERS Safety Report 5742343-5 (Version None)
Quarter: 2008Q2

REPORT INFORMATION
  Report Type: 
  Country: None (occurrence: None)
  Receive Date: 20080519
  Receipt Date: 20080508
  Transmission Date: 20081010
  Serious: Yes (Other)
  Sender: FDA-Public Use
  Company Number: CA-JNJFOC-20080100917

PATIENT
  Age: 64 Year
  Sex: Female
  Weight: 109 kg

DRUGS (11)
  1. REMICADE [Suspect]
     Indication: CROHN'S DISEASE
     Route: 042
  2. EFFEXOR [Concomitant]
  3. SALOFALK [Concomitant]
  4. SODIUM [Concomitant]
  5. RIVA-SENNA [Concomitant]
  6. RIVA-D [Concomitant]
  7. CAL [Concomitant]
  8. PREMARINE [Concomitant]
  9. CRESTOR [Concomitant]
  10. ADALAT [Concomitant]
  11. PERINDOPRIL ERBUMINE [Concomitant]

REACTIONS (3)
  - ABDOMINAL PAIN [None]
  - DIARRHOEA [None]
  - SYSTEMIC LUPUS ERYTHEMATOSUS [None]
